FAERS Safety Report 25800361 (Version 1)
Quarter: 2025Q3

REPORT INFORMATION
  Report Type: Report from Study
  Country: CA (occurrence: CA)
  Receive Date: 20250915
  Receipt Date: 20250915
  Transmission Date: 20251020
  Serious: No
  Sender: ASTELLAS
  Company Number: CA-ASTELLAS-2025-AER-049018

PATIENT
  Age: 62 Year
  Sex: Female

DRUGS (1)
  1. FEZOLINETANT [Suspect]
     Active Substance: FEZOLINETANT
     Indication: Menopause
     Route: 048

REACTIONS (3)
  - Hepatic enzyme increased [Unknown]
  - Chromaturia [Unknown]
  - Yawning [Unknown]
